FAERS Safety Report 9731244 (Version 2)
Quarter: 2013Q4

REPORT INFORMATION
  Report Type: Spontaneous
  Country: US (occurrence: US)
  Receive Date: 20131203
  Receipt Date: 20131203
  Transmission Date: 20140711
  Serious: Yes (Hospitalization, Other)
  Sender: FDA-Public Use
  Company Number: US-BAXTER-2013BAX046910

PATIENT
  Sex: Male

DRUGS (3)
  1. DIANEAL LOW CALCIUM [Suspect]
     Indication: RENAL FAILURE CHRONIC
     Route: 033
     Dates: start: 201310
  2. DIANEAL LOW CALCIUM [Suspect]
     Route: 033
     Dates: start: 201310
  3. DIANEAL LOW CALCIUM [Suspect]
     Route: 033
     Dates: start: 201311

REACTIONS (4)
  - Pneumonia fungal [Recovered/Resolved]
  - Inguinal hernia [Not Recovered/Not Resolved]
  - Fluid overload [Recovered/Resolved]
  - Nasopharyngitis [Unknown]
